FAERS Safety Report 7854176-4 (Version None)
Quarter: 2011Q4

REPORT INFORMATION
  Report Type: 
  Country: None (occurrence: None)
  Receive Date: 20111026
  Receipt Date: 20111014
  Transmission Date: 20120403
  Serious: Yes (Hospitalization, Disabling)
  Sender: FDA-Public Use
  Company Number: US-BAYER-2011-099711

PATIENT
  Sex: Female

DRUGS (3)
  1. DROSPIRENONE AND ETHINYL ESTRADIOL [Suspect]
     Dosage: UNK
     Dates: start: 20061001, end: 20090101
  2. YASMIN [Suspect]
     Dosage: UNK
     Dates: start: 20061001, end: 20090101
  3. YAZ [Suspect]
     Dosage: UNK
     Dates: start: 20061001, end: 20090101

REACTIONS (5)
  - INJURY [None]
  - GALLBLADDER DISORDER [None]
  - PAIN [None]
  - ANXIETY [None]
  - ANHEDONIA [None]
